FAERS Safety Report 5963655-6 (Version None)
Quarter: 2008Q4

REPORT INFORMATION
  Report Type: 
  Country: None (occurrence: None)
  Receive Date: 20081124
  Receipt Date: 20081110
  Transmission Date: 20090506
  Serious: Yes (Other)
  Sender: FDA-Public Use
  Company Number: CA-GENENTECH-271321

PATIENT
  Sex: Female

DRUGS (2)
  1. XOLAIR [Suspect]
     Indication: DRUG USE FOR UNKNOWN INDICATION
  2. HYPERTENSIVE MEDICATION (UNK INGREDIENTS) [Concomitant]
     Indication: HYPERTENSION

REACTIONS (1)
  - APPENDICITIS [None]
